FAERS Safety Report 14676005 (Version 4)
Quarter: 2018Q2

REPORT INFORMATION
  Report Type: Spontaneous
  Country: US (occurrence: US)
  Receive Date: 20180323
  Receipt Date: 20180420
  Transmission Date: 20180711
  Serious: No
  Sender: FDA-Public Use
  Company Number: US-ELI_LILLY_AND_COMPANY-US201803006230

PATIENT
  Age: 62 Year
  Sex: Female
  Weight: 75 kg

DRUGS (3)
  1. REMODULIN [Suspect]
     Active Substance: TREPROSTINIL
     Dosage: 20 UG/KG, CONTINOUS
     Route: 058
     Dates: start: 20180305
  2. REMODULIN [Suspect]
     Active Substance: TREPROSTINIL
     Indication: PULMONARY ARTERIAL HYPERTENSION
     Dosage: 16 UG/KG, CONTINUOS
     Route: 058
     Dates: start: 20180305
  3. ADCIRCA [Suspect]
     Active Substance: TADALAFIL
     Indication: PULMONARY ARTERIAL HYPERTENSION
     Dosage: UNK, UNKNOWN
     Route: 065

REACTIONS (19)
  - Anxiety [Unknown]
  - Dyspnoea [Unknown]
  - Pain in extremity [Not Recovered/Not Resolved]
  - Face oedema [Unknown]
  - Burning sensation [Unknown]
  - Malaise [Unknown]
  - Crepitations [Unknown]
  - Chills [Unknown]
  - Skin plaque [Unknown]
  - Nasal congestion [Unknown]
  - Feeling abnormal [Unknown]
  - Pruritus [Unknown]
  - Fatigue [Unknown]
  - Herpes zoster [Unknown]
  - Nausea [Not Recovered/Not Resolved]
  - Pain [Not Recovered/Not Resolved]
  - Papule [Recovered/Resolved]
  - Diarrhoea [Not Recovered/Not Resolved]
  - Rash [Unknown]

NARRATIVE: CASE EVENT DATE: 20180406
